FAERS Safety Report 5259314-8 (Version None)
Quarter: 2007Q1

REPORT INFORMATION
  Report Type: 
  Country: None (occurrence: None)
  Receive Date: 20070305
  Receipt Date: 20070220
  Transmission Date: 20070707
  Serious: Yes (Other)
  Sender: FDA-Public Use
  Company Number: OSCN-NO-0604S-0113

PATIENT
  Age: 59 Year
  Sex: Male

DRUGS (1)
  1. OMNISCAN [Suspect]
     Indication: DRUG USE FOR UNKNOWN INDICATION
     Dosage: UNKNOWN, SINGLE DOSE, I.V.
     Route: 042
     Dates: start: 20030808, end: 20030808

REACTIONS (1)
  - NEPHROGENIC FIBROSING DERMOPATHY [None]
